FAERS Safety Report 6736843-9 (Version None)
Quarter: 2010Q2

REPORT INFORMATION
  Report Type: 
  Country: None (occurrence: None)
  Receive Date: 20100520
  Receipt Date: 20100520
  Transmission Date: 20101027
  Serious: Yes (Hospitalization)
  Sender: FDA-Public Use
  Company Number: None

PATIENT
  Age: 51 Year
  Sex: Male
  Weight: 120.2032 kg

DRUGS (1)
  1. CIPROFLOXACN 250 MG TAB [Suspect]
     Indication: INFECTION PROPHYLAXIS
     Dosage: ONE TABLET TWICE DAY PO
     Route: 048
     Dates: start: 20100514, end: 20100518

REACTIONS (20)
  - AGITATION [None]
  - ANXIETY [None]
  - CHEST DISCOMFORT [None]
  - CHILLS [None]
  - CONFUSIONAL STATE [None]
  - DECREASED APPETITE [None]
  - DEPRESSION [None]
  - DRUG HYPERSENSITIVITY [None]
  - FATIGUE [None]
  - HALLUCINATION [None]
  - INSOMNIA [None]
  - MENTAL STATUS CHANGES [None]
  - MOOD ALTERED [None]
  - MUSCULAR WEAKNESS [None]
  - RASH [None]
  - RESTLESSNESS [None]
  - SKIN BURNING SENSATION [None]
  - SUICIDAL IDEATION [None]
  - VISUAL IMPAIRMENT [None]
  - WEIGHT DECREASED [None]
